FAERS Safety Report 13860683 (Version 1)
Quarter: 2017Q3

REPORT INFORMATION
  Report Type: Spontaneous
  Country: US (occurrence: US)
  Receive Date: 20170811
  Receipt Date: 20170811
  Transmission Date: 20171127
  Serious: No
  Sender: FDA-Public Use
  Company Number: None

PATIENT
  Age: 49 Year
  Sex: Female

DRUGS (1)
  1. ONDANSETRON ODT [Suspect]
     Active Substance: ONDANSETRON
     Dosage: PLACE 1 TABLET ON TONGUE EVERY 8 HOURS AS NEEDED FOR NAUSEA

REACTIONS (4)
  - Product quality issue [None]
  - Burn oral cavity [None]
  - Chemical burn [None]
  - Burns first degree [None]

NARRATIVE: CASE EVENT DATE: 20170808
